FAERS Safety Report 5073155-6 (Version None)
Quarter: 2006Q3

REPORT INFORMATION
  Report Type: 
  Country: None (occurrence: None)
  Receive Date: 20060808
  Receipt Date: 20060728
  Transmission Date: 20061208
  Serious: Yes (Life-Threatening, Other)
  Sender: FDA-Public Use
  Company Number: US-JNJFOC-20060705995

PATIENT
  Sex: Female
  Weight: 53.07 kg

DRUGS (5)
  1. REMICADE [Suspect]
     Route: 042
  2. REMICADE [Suspect]
     Route: 042
  3. REMICADE [Suspect]
     Indication: CROHN'S DISEASE
     Route: 042
  4. MESALAMINE [Concomitant]
     Indication: CROHN'S DISEASE
  5. QUESTRAN [Concomitant]
     Indication: CROHN'S DISEASE

REACTIONS (1)
  - PANCREATIC CARCINOMA [None]
